FAERS Safety Report 14661128 (Version 3)
Quarter: 2018Q2

REPORT INFORMATION
  Report Type: Report from Study
  Country: BE (occurrence: BE)
  Receive Date: 20180320
  Receipt Date: 20180511
  Transmission Date: 20180711
  Serious: Yes (Hospitalization, Other)
  Sender: FDA-Public Use
  Company Number: BE-TESARO, INC.-BE-2018TSO01164

PATIENT
  Age: 50 Year
  Sex: Female
  Weight: 49.8 kg

DRUGS (14)
  1. OTRIVINE DUO [Concomitant]
     Indication: UPPER RESPIRATORY TRACT INFECTION
     Dosage: 0.5 + 0.6 MG, BID
     Route: 045
     Dates: start: 20180301, end: 20180307
  2. LYSOMUCIL [Concomitant]
     Active Substance: ACETYLCYSTEINE
     Indication: UPPER RESPIRATORY TRACT INFECTION
     Dosage: 600 MG, QD
     Route: 048
     Dates: start: 20180226, end: 20180307
  3. RHINOSPRAY [Concomitant]
     Active Substance: TRAMAZOLINE HYDROCHLORIDE
     Indication: UPPER RESPIRATORY TRACT INFECTION
     Dosage: 1 PUFF, PRN
     Route: 045
     Dates: start: 20180226, end: 20180228
  4. NIRAPARIB [Suspect]
     Active Substance: NIRAPARIB
     Indication: OVARIAN CANCER
     Dosage: 200 MG, QD
     Route: 048
     Dates: start: 20180222, end: 20180307
  5. PANTOMED                           /00178901/ [Concomitant]
     Active Substance: DEXPANTHENOL
     Indication: PROPHYLAXIS
     Dosage: 40 MG, QD
     Route: 042
     Dates: start: 20180308
  6. MAGIC MOUTHWASH [Concomitant]
     Active Substance: DIPHENHYDRAMINE HYDROCHLORIDE\LIDOCAINE HYDROCHLORIDE\NYSTATIN
     Indication: MUCOSAL INFLAMMATION
  7. PHYSIOMER [Concomitant]
     Indication: NASOPHARYNGITIS
     Dosage: UNK, PRN
     Route: 045
     Dates: start: 20180301
  8. MAGIC MOUTHWASH [Concomitant]
     Active Substance: DIPHENHYDRAMINE HYDROCHLORIDE\LIDOCAINE HYDROCHLORIDE\NYSTATIN
     Indication: PHARYNGITIS
  9. PERDOLAN                           /00012701/ [Concomitant]
     Indication: PHARYNGITIS
     Dosage: UNK, PRN
     Route: 054
     Dates: start: 20180305, end: 20180307
  10. NIRAPARIB [Suspect]
     Active Substance: NIRAPARIB
     Dosage: 100 MG, QD
     Route: 048
     Dates: start: 20180330
  11. NASONEX [Concomitant]
     Active Substance: MOMETASONE FUROATE
     Indication: NASOPHARYNGITIS
     Dosage: 50 ?G, QD
     Route: 045
     Dates: start: 20180301
  12. MAGIC MOUTHWASH [Concomitant]
     Active Substance: DIPHENHYDRAMINE HYDROCHLORIDE\LIDOCAINE HYDROCHLORIDE\NYSTATIN
     Indication: UPPER RESPIRATORY TRACT INFECTION
     Dosage: 1 TABLESPOON, QID
     Route: 048
     Dates: start: 20180301
  13. AMOXICILLINE                       /00249601/ [Concomitant]
     Active Substance: AMOXICILLIN
     Indication: PHARYNGITIS
     Dosage: UNK UNK, TID
     Route: 048
     Dates: start: 20180305, end: 20180307
  14. CYMBALTA [Concomitant]
     Active Substance: DULOXETINE HYDROCHLORIDE
     Indication: DEPRESSION
     Dosage: 30 MG, QD
     Route: 048
     Dates: start: 20180309

REACTIONS (2)
  - Decreased appetite [Recovered/Resolved]
  - Febrile neutropenia [Recovered/Resolved]

NARRATIVE: CASE EVENT DATE: 20180307
